FAERS Safety Report 7893706-3 (Version None)
Quarter: 2011Q4

REPORT INFORMATION
  Report Type: 
  Country: None (occurrence: None)
  Receive Date: 20111104
  Receipt Date: 20111102
  Transmission Date: 20120403
  Serious: Yes (Death, Hospitalization)
  Sender: FDA-Public Use
  Company Number: JP-B.I. PHARMACEUTICALS,INC./RIDGEFIELD-2011-BP-24373NB

PATIENT
  Sex: Female
  Weight: 46.4 kg

DRUGS (15)
  1. DEPAS [Concomitant]
     Indication: INSOMNIA
     Dosage: 0.5 MG
     Route: 048
     Dates: start: 20090324
  2. HIRUDOID [Concomitant]
     Indication: PRURITUS
     Route: 062
  3. ALLEGRA [Concomitant]
     Indication: PRURITUS
     Dosage: 120 MG
     Route: 048
     Dates: start: 20100707
  4. TORSEMIDE [Concomitant]
     Indication: CARDIAC FAILURE CHRONIC
     Dosage: 8 MG
     Route: 048
  5. LASIX [Concomitant]
     Indication: CARDIAC FAILURE CHRONIC
     Dosage: 60 MG
     Route: 048
  6. LASIX [Concomitant]
     Route: 065
  7. TAURINE [Concomitant]
     Indication: CARDIAC FAILURE CHRONIC
     Dosage: 3.06 G
     Route: 048
     Dates: start: 20100707
  8. CARVEDILOL [Concomitant]
     Indication: CARDIAC FAILURE CHRONIC
     Dosage: 15 MG
     Route: 048
  9. RASILEZ [Concomitant]
     Indication: CARDIAC FAILURE CHRONIC
     Dosage: 150 MG
     Route: 048
     Dates: start: 20110120
  10. NEUQUINON [Concomitant]
     Indication: CARDIAC FAILURE CHRONIC
     Dosage: 30 MG
     Route: 048
     Dates: start: 20080209
  11. PRADAXA [Suspect]
     Indication: ATRIAL FIBRILLATION
     Dosage: 220 MG
     Route: 048
     Dates: start: 20110507, end: 20110512
  12. CANDESARTAN CILEXETIL [Concomitant]
     Indication: CARDIAC FAILURE CHRONIC
     Dosage: 4 MG
     Route: 048
  13. LANSOPRAZOLE [Concomitant]
     Indication: GASTROOESOPHAGEAL REFLUX DISEASE
     Dosage: 15 MG
     Route: 048
     Dates: start: 20090324, end: 20110512
  14. SLOW-K [Concomitant]
     Indication: HYPOKALAEMIA
     Dosage: 1200 MG
     Route: 048
     Dates: start: 20091221
  15. PIMOBENDAN [Concomitant]
     Indication: CARDIAC FAILURE CHRONIC
     Dosage: 5 MG
     Route: 048

REACTIONS (4)
  - CARDIAC FAILURE ACUTE [None]
  - ABDOMINAL PAIN UPPER [None]
  - VOMITING [None]
  - NAUSEA [None]
